FAERS Safety Report 8397133-4 (Version None)
Quarter: 2012Q2

REPORT INFORMATION
  Report Type: 
  Country: None (occurrence: None)
  Receive Date: 20120530
  Receipt Date: 20120518
  Transmission Date: 20120825
  Serious: Yes (Hospitalization, Disabling)
  Sender: FDA-Public Use
  Company Number: JP-ROCHE-1052845

PATIENT
  Sex: Female

DRUGS (10)
  1. PREDNISOLONE [Concomitant]
     Route: 048
     Dates: start: 20080819, end: 20090826
  2. ACTEMRA [Suspect]
     Route: 041
  3. PREDNISOLONE [Concomitant]
     Route: 048
     Dates: start: 20110225, end: 20110407
  4. ACTEMRA [Suspect]
     Route: 041
     Dates: start: 20110302, end: 20110302
  5. VOLTAREN [Concomitant]
     Indication: RHEUMATOID ARTHRITIS
     Route: 054
     Dates: start: 20020401, end: 20090826
  6. RHEUMATREX [Concomitant]
     Indication: RHEUMATOID ARTHRITIS
     Route: 048
     Dates: start: 20020320, end: 20090826
  7. ACTEMRA [Suspect]
     Indication: RHEUMATOID ARTHRITIS
     Route: 041
     Dates: start: 20090225
  8. RHEUMATREX [Concomitant]
     Route: 048
     Dates: start: 20110225, end: 20110407
  9. PREDNISOLONE [Concomitant]
     Indication: RHEUMATOID ARTHRITIS
     Route: 048
     Dates: start: 20001011, end: 20040815
  10. FOLIAMIN [Concomitant]
     Indication: RHEUMATOID ARTHRITIS
     Route: 048
     Dates: start: 20110225, end: 20110407

REACTIONS (6)
  - FOOT AMPUTATION [None]
  - SKIN ULCER [None]
  - CELLULITIS [None]
  - LEG AMPUTATION [None]
  - RASH [None]
  - INFECTION [None]
